FAERS Safety Report 22363546 (Version 1)
Quarter: 2023Q2

REPORT INFORMATION
  Report Type: Spontaneous
  Country: US (occurrence: US)
  Receive Date: 20230525
  Receipt Date: 20230525
  Transmission Date: 20230721
  Serious: No
  Sender: FDA-Public Use
  Company Number: US-TOLMAR, INC.-23US040634

PATIENT
  Sex: Female

DRUGS (7)
  1. METRONIDAZOLE [Suspect]
     Active Substance: METRONIDAZOLE
     Indication: Psoriatic arthropathy
     Dosage: 1 % PERCENT
     Route: 003
  2. CLOBETASOL [Suspect]
     Active Substance: CLOBETASOL
     Indication: Psoriatic arthropathy
     Dosage: 0.05 % PERCENT
  3. TRIAMCINOLONE [Suspect]
     Active Substance: TRIAMCINOLONE
     Indication: Psoriatic arthropathy
     Dosage: 0.025 % PERCENT
     Route: 003
  4. DOXYCYCLINE [Suspect]
     Active Substance: DOXYCYCLINE
     Indication: Psoriatic arthropathy
     Dosage: 20 MILLIGRAM, BID
     Route: 048
  5. LEVOTHYROXINE [Suspect]
     Active Substance: LEVOTHYROXINE
     Indication: Psoriatic arthropathy
     Dosage: 100 MICROGRAM
  6. LORAZEPAM [Suspect]
     Active Substance: LORAZEPAM
     Indication: Psoriatic arthropathy
     Dosage: 0.5 MILLIGRAM
     Route: 048
  7. METFORMIN [Suspect]
     Active Substance: METFORMIN HYDROCHLORIDE
     Indication: Psoriatic arthropathy
     Dosage: 500 MILLIGRAM
     Route: 048

REACTIONS (1)
  - Drug ineffective [Unknown]
